FAERS Safety Report 9103450 (Version 2)
Quarter: 2013Q2

REPORT INFORMATION
  Report Type: Spontaneous
  Country: US (occurrence: US)
  Receive Date: 20130219
  Receipt Date: 20130410
  Transmission Date: 20140414
  Serious: No
  Sender: FDA-Public Use
  Company Number: US-PFIZER INC-2013060397

PATIENT
  Age: 71 Year
  Sex: Female
  Weight: 53.97 kg

DRUGS (2)
  1. RELPAX [Suspect]
     Indication: MIGRAINE
     Dosage: 40 MG, AS NEEDED
     Route: 048
  2. PROPANOLOL [Concomitant]
     Dosage: 40 MG, 1X/DAY

REACTIONS (3)
  - Poor quality drug administered [Unknown]
  - Headache [Unknown]
  - Product packaging issue [Unknown]
